FAERS Safety Report 19860574 (Version 1)
Quarter: 2021Q3

REPORT INFORMATION
  Report Type: Spontaneous
  Country: US (occurrence: US)
  Receive Date: 20210917
  Receipt Date: 20210917
  Transmission Date: 20211014
  Serious: No
  Sender: FDA-Public Use
  Company Number: None

PATIENT
  Sex: Male

DRUGS (1)
  1. HUMIRA [Suspect]
     Active Substance: ADALIMUMAB
     Indication: CROHN^S DISEASE
     Dosage: OTHER DOSE:40MG/0.4ML;?
     Route: 058
     Dates: start: 20190116

REACTIONS (5)
  - Back pain [None]
  - Pain in jaw [None]
  - Trigger finger [None]
  - Pain in extremity [None]
  - Neck pain [None]
